FAERS Safety Report 7118917-6 (Version None)
Quarter: 2010Q4

REPORT INFORMATION
  Report Type: 
  Country: None (occurrence: None)
  Receive Date: 20101123
  Receipt Date: 20101118
  Transmission Date: 20110411
  Serious: Yes (Life-Threatening, Hospitalization, Other)
  Sender: FDA-Public Use
  Company Number: US-ELI_LILLY_AND_COMPANY-US201011003478

PATIENT
  Sex: Female
  Weight: 133.6 kg

DRUGS (11)
  1. PRASUGREL HYDROCHLORIDE [Suspect]
     Indication: ACUTE CORONARY SYNDROME
     Dosage: 10 MG, DAILY (1/D)
     Dates: start: 20100505
  2. ASPIRIN [Concomitant]
     Dosage: 325 MG, DAILY (1/D)
     Dates: start: 20100504
  3. LEVEMIR [Concomitant]
     Indication: DIABETES MELLITUS
     Dosage: 150 IU, DAILY (1/D)
     Route: 058
     Dates: start: 20080101
  4. NOVOLOG [Concomitant]
     Indication: DIABETES MELLITUS
     Dosage: 130 IU, 3/D
     Route: 058
     Dates: start: 20080101
  5. ISOSORBIDE DINITRATE [Concomitant]
     Indication: ANGINA PECTORIS
     Dosage: 40 MG, 2/D
     Route: 048
     Dates: start: 20050101
  6. OMEPRAZOLE [Concomitant]
     Indication: REFLUX GASTRITIS
     Dosage: 20 MG, DAILY (1/D)
     Route: 048
     Dates: start: 20060101
  7. SPIRONOLACTONE [Concomitant]
     Indication: DIURETIC THERAPY
     Dosage: 50 MG, DAILY (1/D)
     Route: 048
     Dates: start: 20090101
  8. TOPROL-XL [Concomitant]
     Indication: HYPERTENSION
     Dosage: 100 MG, DAILY (1/D)
     Route: 048
     Dates: start: 20050101
  9. HYDROCHLOROTHIAZIDE [Concomitant]
     Indication: DIURETIC THERAPY
     Dosage: 25 MG, DAILY (1/D)
     Route: 048
     Dates: start: 20000101
  10. FISH OIL [Concomitant]
     Indication: SUPPLEMENTATION THERAPY
     Dosage: 1000 MG, DAILY (1/D)
     Route: 048
     Dates: start: 20000101
  11. CLOPIDOGREL [Concomitant]
     Dosage: 300 MG, ONCE
     Route: 065
     Dates: start: 20100503, end: 20100503

REACTIONS (4)
  - ACUTE MYOCARDIAL INFARCTION [None]
  - CARDIAC TAMPONADE [None]
  - RESPIRATORY ACIDOSIS [None]
  - RESPIRATORY FAILURE [None]
